FAERS Safety Report 9385190 (Version 2)
Quarter: 2013Q3

REPORT INFORMATION
  Report Type: Report from Study
  Country: AR (occurrence: AR)
  Receive Date: 20130705
  Receipt Date: 20130805
  Transmission Date: 20140515
  Serious: Yes (Other)
  Sender: FDA-Public Use
  Company Number: AR-ABBOTT-13P-007-1113889-00

PATIENT
  Sex: Female
  Weight: 69 kg

DRUGS (3)
  1. HUMIRA [Suspect]
     Indication: RHEUMATOID ARTHRITIS
     Route: 058
     Dates: start: 201209, end: 201302
  2. HUMIRA [Suspect]
     Route: 058
     Dates: start: 2010, end: 2010
  3. MEDICATION (UNKNOWN DRUG) [Concomitant]

REACTIONS (1)
  - Joint injury [Unknown]
